FAERS Safety Report 8528751-8 (Version None)
Quarter: 2012Q3

REPORT INFORMATION
  Report Type: 
  Country: None (occurrence: None)
  Receive Date: 20120723
  Receipt Date: 20120705
  Transmission Date: 20120928
  Serious: Yes (Other)
  Sender: FDA-Public Use
  Company Number: CA-009507513-1207CAN004958

PATIENT

DRUGS (1)
  1. HEPARIN SODIUM [Suspect]
     Indication: ARTERIAL CATHETERISATION

REACTIONS (1)
  - SKIN NECROSIS [None]
